FAERS Safety Report 9061246 (Version 1)
Quarter: 2013Q1

REPORT INFORMATION
  Report Type: Spontaneous
  Country: US (occurrence: None)
  Receive Date: 20130208
  Receipt Date: 20130208
  Transmission Date: 20140127
  Serious: Yes (Life-Threatening, Hospitalization)
  Sender: FDA-Public Use
  Company Number: None

PATIENT
  Age: 33 Year
  Sex: Female
  Weight: 75.3 kg

DRUGS (1)
  1. MIRENA IUD [Suspect]
     Indication: CONTRACEPTION
     Dates: start: 20060701, end: 20130206

REACTIONS (7)
  - Infection [None]
  - Heart rate increased [None]
  - Pyrexia [None]
  - Neck pain [None]
  - Oropharyngeal pain [None]
  - Dizziness [None]
  - Device dislocation [None]
